FAERS Safety Report 9130458 (Version 3)
Quarter: 2013Q2

REPORT INFORMATION
  Report Type: Spontaneous
  Country: JP (occurrence: JP)
  Receive Date: 20130301
  Receipt Date: 20130503
  Transmission Date: 20140414
  Serious: Yes (Death)
  Sender: FDA-Public Use
  Company Number: JP-MERCK-1302JPN012142

PATIENT
  Age: 56 Year
  Sex: Male

DRUGS (3)
  1. REFLEX [Suspect]
     Indication: DEPRESSION
     Dosage: 15 MG, HS
     Route: 048
     Dates: start: 20121119, end: 20121125
  2. REFLEX [Suspect]
     Indication: INSOMNIA
  3. ZOLPIDEM TARTRATE [Suspect]
     Indication: INSOMNIA
     Dosage: 10 MG, PRN
     Route: 048
     Dates: start: 20121119, end: 20121125

REACTIONS (1)
  - Completed suicide [Fatal]
